FAERS Safety Report 7778150-1 (Version None)
Quarter: 2011Q3

REPORT INFORMATION
  Report Type: 
  Country: None (occurrence: None)
  Receive Date: 20110926
  Receipt Date: 20110415
  Transmission Date: 20111222
  Serious: No
  Sender: FDA-Public Use
  Company Number: US-MUTUAL PHARMACEUTICAL COMPANY, INC.-BCTM20110021

PATIENT
  Sex: Female
  Weight: 68.1 kg

DRUGS (3)
  1. BACTRIM DS [Suspect]
     Indication: URINARY TRACT INFECTION
     Route: 048
     Dates: start: 20110326, end: 20110404
  2. ARIMIDEX [Suspect]
     Indication: PRODUCT USED FOR UNKNOWN INDICATION
     Route: 048
     Dates: start: 20110301
  3. BACTRIM DS [Suspect]
     Indication: BREAST INFECTION

REACTIONS (1)
  - AGEUSIA [None]
